FAERS Safety Report 7207541-2 (Version None)
Quarter: 2011Q1

REPORT INFORMATION
  Report Type: 
  Country: None (occurrence: None)
  Receive Date: 20110103
  Receipt Date: 20101116
  Transmission Date: 20110831
  Serious: No
  Sender: FDA-Public Use
  Company Number: US-JNJFOC-20101202646

PATIENT
  Sex: Male

DRUGS (4)
  1. INVEGA [Suspect]
     Indication: ILL-DEFINED DISORDER
     Route: 048
  2. INVEGA [Suspect]
     Route: 048
  3. INVEGA [Suspect]
     Route: 048
  4. ABILIFY [Concomitant]
     Indication: DEPRESSION

REACTIONS (7)
  - WEIGHT INCREASED [None]
  - PARAESTHESIA [None]
  - MANIA [None]
  - LIBIDO DISORDER [None]
  - SEDATION [None]
  - ANXIETY [None]
  - HYPERSENSITIVITY [None]
